FAERS Safety Report 7878392-0 (Version None)
Quarter: 2011Q4

REPORT INFORMATION
  Report Type: 
  Country: None (occurrence: None)
  Receive Date: 20111003
  Receipt Date: 20110606
  Transmission Date: 20120403
  Serious: Yes (Death, Other)
  Sender: FDA-Public Use
  Company Number: 284748USA

PATIENT
  Sex: Female

DRUGS (2)
  1. APRI TABLET 0.15/0.03MG (DESOGESTREL W/ETHINYLESTRADIOL) [Suspect]
  2. METHYLPREDNISOLONE [Suspect]

REACTIONS (2)
  - VENOUS THROMBOSIS [None]
  - PULMONARY EMBOLISM [None]
